FAERS Safety Report 12221013 (Version 1)
Quarter: 2016Q1

REPORT INFORMATION
  Report Type: Spontaneous
  Country: US (occurrence: None)
  Receive Date: 20160329
  Receipt Date: 20160329
  Transmission Date: 20160526
  Serious: Yes (Other)
  Sender: FDA-Public Use
  Company Number: None

PATIENT
  Age: 25 Year
  Sex: Female
  Weight: 52.16 kg

DRUGS (1)
  1. NEXPLANON [Suspect]
     Active Substance: ETONOGESTREL

REACTIONS (6)
  - Coronary artery occlusion [None]
  - Electrocardiogram abnormal [None]
  - Chest pain [None]
  - Blood potassium decreased [None]
  - Menstrual disorder [None]
  - Hypertension [None]

NARRATIVE: CASE EVENT DATE: 20160322
